FAERS Safety Report 11430137 (Version 1)
Quarter: 2015Q3

REPORT INFORMATION
  Report Type: Spontaneous
  Country: US (occurrence: US)
  Receive Date: 20150828
  Receipt Date: 20150828
  Transmission Date: 20151125
  Serious: Yes (Other)
  Sender: FDA-Public Use
  Company Number: US-ROCHE-387559

PATIENT
  Age: 48 Year
  Sex: Male
  Weight: 91.2 kg

DRUGS (16)
  1. PEGASYS [Suspect]
     Active Substance: PEGINTERFERON ALFA-2A
     Route: 058
  2. COPEGUS [Suspect]
     Active Substance: RIBAVIRIN
     Indication: HEPATITIS C
     Dosage: STRENGTH: 200. DOSAGE REGIMEN: 600 BID.
     Route: 048
     Dates: start: 20040629, end: 2005
  3. PEGASYS [Suspect]
     Active Substance: PEGINTERFERON ALFA-2A
     Route: 058
  4. COPEGUS [Suspect]
     Active Substance: RIBAVIRIN
     Route: 048
  5. PERCOCET [Concomitant]
     Active Substance: ACETAMINOPHEN\OXYCODONE HYDROCHLORIDE
     Indication: SPINAL CORD INJURY
  6. COPEGUS [Suspect]
     Active Substance: RIBAVIRIN
     Route: 048
  7. COPEGUS [Suspect]
     Active Substance: RIBAVIRIN
     Dosage: 1 IN MORNING AND 1 IN EVENING
     Route: 048
  8. PEGASYS [Suspect]
     Active Substance: PEGINTERFERON ALFA-2A
     Indication: HEPATITIS C
     Dosage: FORM: PFS
     Route: 058
     Dates: start: 20040629, end: 2005
  9. PEGASYS [Suspect]
     Active Substance: PEGINTERFERON ALFA-2A
     Route: 058
  10. PEGASYS [Suspect]
     Active Substance: PEGINTERFERON ALFA-2A
     Route: 058
  11. COPEGUS [Suspect]
     Active Substance: RIBAVIRIN
     Dosage: DIVIDED DOSES
     Route: 048
  12. REBETOL [Suspect]
     Active Substance: RIBAVIRIN
     Indication: HEPATITIS C
     Route: 065
  13. NEUPOGEN [Suspect]
     Active Substance: FILGRASTIM
     Indication: PRODUCT USED FOR UNKNOWN INDICATION
     Route: 065
  14. PEGASYS [Suspect]
     Active Substance: PEGINTERFERON ALFA-2A
     Route: 058
  15. PEGASYS [Suspect]
     Active Substance: PEGINTERFERON ALFA-2A
     Route: 058
  16. COPEGUS [Suspect]
     Active Substance: RIBAVIRIN
     Dosage: TWO DIVIDED DOSES
     Route: 048

REACTIONS (23)
  - Night sweats [Not Recovered/Not Resolved]
  - Increased tendency to bruise [Unknown]
  - Dry eye [Unknown]
  - Energy increased [Not Recovered/Not Resolved]
  - Abdominal pain upper [Unknown]
  - Full blood count decreased [Unknown]
  - Palpitations [Not Recovered/Not Resolved]
  - Insomnia [Recovered/Resolved]
  - Abdominal pain [Recovered/Resolved]
  - Confusional state [Unknown]
  - Pain [Not Recovered/Not Resolved]
  - Mood swings [Unknown]
  - Hallucination [Recovered/Resolved]
  - Flatulence [Recovered/Resolved]
  - Rash [Unknown]
  - Platelet count decreased [Not Recovered/Not Resolved]
  - Tooth injury [Not Recovered/Not Resolved]
  - Anxiety [Recovered/Resolved]
  - Mental disorder [Unknown]
  - Back pain [Unknown]
  - Alopecia [Unknown]
  - Disease recurrence [Unknown]
  - Influenza like illness [Unknown]

NARRATIVE: CASE EVENT DATE: 200501
